FAERS Safety Report 8005490-3 (Version None)
Quarter: 2011Q4

REPORT INFORMATION
  Report Type: 
  Country: None (occurrence: None)
  Receive Date: 20111223
  Receipt Date: 20111221
  Transmission Date: 20120403
  Serious: Yes (Hospitalization)
  Sender: FDA-Public Use
  Company Number: NL-ROCHE-1024216

PATIENT
  Sex: Male
  Weight: 95 kg

DRUGS (3)
  1. METHOTREXATE [Suspect]
     Indication: RHEUMATOID ARTHRITIS
     Route: 048
     Dates: start: 20070530, end: 20111103
  2. ACTEMRA [Suspect]
     Indication: RHEUMATOID ARTHRITIS
     Route: 042
     Dates: start: 20090924, end: 20111028
  3. HYDROXYCHLOROQUINE SULFATE [Suspect]
     Indication: RHEUMATOID ARTHRITIS
     Route: 048
     Dates: start: 20070530, end: 20111103

REACTIONS (1)
  - CHRONIC OBSTRUCTIVE PULMONARY DISEASE [None]
